FAERS Safety Report 18725790 (Version 1)
Quarter: 2021Q1

REPORT INFORMATION
  Report Type: Spontaneous
  Country: NL (occurrence: NL)
  Receive Date: 20210111
  Receipt Date: 20210111
  Transmission Date: 20210419
  Serious: Yes (Other)
  Sender: FDA-Public Use
  Company Number: NL-TEVA-2021-NL-1866738

PATIENT
  Sex: Female
  Weight: 60 kg

DRUGS (5)
  1. IMOVANE [Suspect]
     Active Substance: ZOPICLONE
     Indication: PRODUCT USED FOR UNKNOWN INDICATION
     Dosage: 7.5 MILLIGRAM DAILY; UNIT DOSE : 7.5 MG
     Dates: start: 20101125
  2. CARVEDILOL TABLET 12,5MG / BRAND NAME NOT SPECIFIED [Suspect]
     Active Substance: CARVEDILOL
     Indication: PRODUCT USED FOR UNKNOWN INDICATION
     Dosage: 25 MILLIGRAM DAILY; THERAPY END DATE : ASKED BUT UNKNOWN
     Dates: start: 20030206
  3. AMLODIPINE TABLET   5MG / BRAND NAME NOT SPECIFIED [Suspect]
     Active Substance: AMLODIPINE BESYLATE
     Indication: PRODUCT USED FOR UNKNOWN INDICATION
     Dosage: 2.5 MILLIGRAM DAILY; THERAPY END DATE : ASKED BUT UNKNOWN
     Dates: start: 20160429
  4. ALLOPURINOL TABLET 100MG / BRAND NAME NOT SPECIFIED [Suspect]
     Active Substance: ALLOPURINOL
     Indication: PRODUCT USED FOR UNKNOWN INDICATION
     Dosage: 100 MILLIGRAM DAILY; THERAPY END DATE : ASKED BUT UNKNOWN
     Dates: start: 20041018
  5. FOSINOPRIL TABLET 10MG / BRAND NAME NOT SPECIFIED [Suspect]
     Active Substance: FOSINOPRIL
     Indication: PRODUCT USED FOR UNKNOWN INDICATION
     Dosage: 5 MILLIGRAM DAILY; THERAPY END DATE : ASKED BUT UNKNOWN
     Dates: start: 20030206

REACTIONS (3)
  - Swollen tongue [Unknown]
  - Salivary hypersecretion [Unknown]
  - Lip swelling [Unknown]
